FAERS Safety Report 13738521 (Version 1)
Quarter: 2017Q3

REPORT INFORMATION
  Report Type: Report from Study
  Country: US (occurrence: US)
  Receive Date: 20170710
  Receipt Date: 20170710
  Transmission Date: 20171127
  Serious: No
  Sender: FDA-Public Use
  Company Number: US-SAOL THERAPEUTICS-2017SAO00107

PATIENT
  Sex: Male

DRUGS (12)
  1. BACLOFEN. [Suspect]
     Active Substance: BACLOFEN
     Dosage: 374.56 ?G, \DAY
     Route: 037
     Dates: start: 20160811
  2. FENTANYL. [Suspect]
     Active Substance: FENTANYL
     Dosage: 503.06 ?G, \DAY
     Route: 037
     Dates: start: 20160811
  3. BUPIVACAINE. [Suspect]
     Active Substance: BUPIVACAINE
     Dosage: 21.013 MG, \DAY
     Dates: start: 20160919
  4. FENTANYL. [Suspect]
     Active Substance: FENTANYL
     Dosage: 374.56 ?G, \DAY
     Route: 037
     Dates: start: 20160811, end: 20160919
  5. CLONIDINE. [Suspect]
     Active Substance: CLONIDINE
     Dosage: 603.67 ?G, \DAY
     Route: 037
     Dates: start: 20160811
  6. BACLOFEN. [Suspect]
     Active Substance: BACLOFEN
     Dosage: 350.22 ?G, \DAY
     Dates: start: 20160919
  7. BUPIVACAINE. [Suspect]
     Active Substance: BUPIVACAINE
     Dosage: 22.473 MG, \DAY
     Route: 037
     Dates: start: 20160811, end: 20160919
  8. BUPIVACAINE. [Suspect]
     Active Substance: BUPIVACAINE
     Dosage: 30.184 MG, \DAY
     Route: 037
     Dates: start: 20160811
  9. BACLOFEN. [Suspect]
     Active Substance: BACLOFEN
     Dosage: 503.06 ?G, \DAY
     Route: 037
     Dates: start: 20160811
  10. FENTANYL. [Suspect]
     Active Substance: FENTANYL
     Dosage: 420.26 ?G, \DAY
     Dates: start: 20160919
  11. CLONIDINE. [Suspect]
     Active Substance: CLONIDINE
     Dosage: 449.47 ?G, \DAY
     Route: 037
     Dates: start: 20160811, end: 20160919
  12. CLONIDINE. [Suspect]
     Active Substance: CLONIDINE
     Dosage: 420.26 ?G, \DAY
     Dates: start: 20160919

REACTIONS (1)
  - Asthenia [Not Recovered/Not Resolved]

NARRATIVE: CASE EVENT DATE: 20160919
